FAERS Safety Report 6749689-2 (Version None)
Quarter: 2010Q2

REPORT INFORMATION
  Report Type: 
  Country: None (occurrence: None)
  Receive Date: 20100601
  Receipt Date: 20100525
  Transmission Date: 20101027
  Serious: Yes (Hospitalization)
  Sender: FDA-Public Use
  Company Number: Z0004199A

PATIENT
  Sex: Female
  Weight: 55 kg

DRUGS (2)
  1. PAZOPANIB [Suspect]
     Dosage: 800MG PER DAY
     Route: 048
     Dates: start: 20100506
  2. TAVANIC [Concomitant]
     Indication: LUNG INFECTION
     Dosage: 500MG PER DAY
     Route: 048
     Dates: start: 20100508, end: 20100509

REACTIONS (1)
  - SINUS BRADYCARDIA [None]
